FAERS Safety Report 25202501 (Version 1)
Quarter: 2025Q2

REPORT INFORMATION
  Report Type: Report from Study
  Country: US (occurrence: US)
  Receive Date: 20250416
  Receipt Date: 20250416
  Transmission Date: 20250716
  Serious: Yes (Other)
  Sender: TAKEDA
  Company Number: US-TAKEDA-2025TUS007515

PATIENT
  Sex: Female

DRUGS (1)
  1. VEDOLIZUMAB [Suspect]
     Active Substance: VEDOLIZUMAB
     Indication: Product used for unknown indication
     Dosage: 300 MILLIGRAM, Q6WEEKS

REACTIONS (8)
  - Breast cancer female [Unknown]
  - Rectal haemorrhage [Unknown]
  - Inappropriate schedule of product administration [Unknown]
  - Illness [Unknown]
  - Product dose omission issue [Unknown]
  - Stress [Unknown]
  - Hypophagia [Unknown]
  - Diarrhoea [Unknown]
